FAERS Safety Report 8922383 (Version 2)
Quarter: 2013Q1

REPORT INFORMATION
  Report Type: Spontaneous
  Country: US (occurrence: US)
  Receive Date: 20121126
  Receipt Date: 20130208
  Transmission Date: 20140127
  Serious: Yes (Hospitalization, Other)
  Sender: FDA-Public Use
  Company Number: US-JNJFOC-20121108463

PATIENT
  Sex: Female

DRUGS (3)
  1. RISPERDAL [Suspect]
     Indication: DEPRESSION
     Route: 048
     Dates: start: 2002, end: 201207
  2. RISPERDAL [Suspect]
     Indication: ANXIETY
     Route: 048
     Dates: start: 2002, end: 201207
  3. SEROQUEL [Suspect]
     Indication: PRODUCT USED FOR UNKNOWN INDICATION
     Route: 065

REACTIONS (6)
  - Cerebrovascular accident [Not Recovered/Not Resolved]
  - Tardive dyskinesia [Not Recovered/Not Resolved]
  - Akathisia [Not Recovered/Not Resolved]
  - Dementia [Not Recovered/Not Resolved]
  - Adverse drug reaction [Not Recovered/Not Resolved]
  - Condition aggravated [Not Recovered/Not Resolved]
